FAERS Safety Report 22531077 (Version 1)
Quarter: 2023Q2

REPORT INFORMATION
  Report Type: Spontaneous
  Country: GB (occurrence: GB)
  Receive Date: 20230607
  Receipt Date: 20230607
  Transmission Date: 20230721
  Serious: Yes (Hospitalization)
  Sender: FDA-Public Use
  Company Number: GB-MYLANLABS-2023M1059603

PATIENT
  Age: 2 Month
  Weight: 2.6 kg

DRUGS (3)
  1. FENTANYL [Suspect]
     Active Substance: FENTANYL
     Indication: Sedative therapy
     Dosage: INFUSION WAS GIVEN AT A RATE OF 7 MCG/KG/H
     Route: 065
  2. CLONIDINE [Concomitant]
     Active Substance: CLONIDINE
     Indication: Sedative therapy
     Dosage: INFUSION WAS GIVEN AT A RATE OF 200 MCG/KG/H
     Route: 065
  3. CHLORAL HYDRATE [Concomitant]
     Active Substance: CHLORAL HYDRATE
     Indication: Sedative therapy
     Dosage: 200 MILLIGRAM/KILOGRAM, QD,DOSE: 200MG/KG/DAY IN DIVIDED DOSES
     Route: 054

REACTIONS (1)
  - Drug ineffective [Unknown]
